FAERS Safety Report 5869555-4 (Version None)
Quarter: 2008Q3

REPORT INFORMATION
  Report Type: 
  Country: None (occurrence: None)
  Receive Date: 20080902
  Receipt Date: 20080825
  Transmission Date: 20090109
  Serious: Yes (Hospitalization, Other)
  Sender: FDA-Public Use
  Company Number: 2008SP017360

PATIENT
  Age: 43 Year
  Sex: Male

DRUGS (3)
  1. RIBAVIRIN [Suspect]
     Indication: HEPATITIS C
     Dosage: PO
     Route: 048
     Dates: start: 19981001, end: 20020101
  2. PEG-INTRON [Suspect]
     Indication: HEPATITIS C
     Dates: start: 19981001, end: 20020101
  3. PEGASYS [Suspect]
     Indication: HEPATITIS C
     Dates: start: 19981001, end: 20020101

REACTIONS (21)
  - ABDOMINAL DISTENSION [None]
  - ABDOMINAL PAIN UPPER [None]
  - AGORAPHOBIA [None]
  - ANXIETY [None]
  - BACK PAIN [None]
  - BLOOD URINE PRESENT [None]
  - CHILLS [None]
  - CONDITION AGGRAVATED [None]
  - DEPRESSION [None]
  - FATIGUE [None]
  - HYPOAESTHESIA [None]
  - NAUSEA [None]
  - NEPHROLITHIASIS [None]
  - NO THERAPEUTIC RESPONSE [None]
  - PAIN [None]
  - PARANOIA [None]
  - PERONEAL NERVE PALSY [None]
  - PSYCHOTIC DISORDER [None]
  - SCIATICA [None]
  - URINE BILIRUBIN INCREASED [None]
  - VOMITING [None]
